FAERS Safety Report 11651334 (Version 1)
Quarter: 2015Q4

REPORT INFORMATION
  Report Type: Spontaneous
  Country: US (occurrence: US)
  Receive Date: 20151022
  Receipt Date: 20151022
  Transmission Date: 20160304
  Serious: Yes (Death)
  Sender: FDA-Public Use
  Company Number: US-HOSPIRA-3051741

PATIENT

DRUGS (1)
  1. CARBOPLATIN. [Suspect]
     Active Substance: CARBOPLATIN
     Indication: PRODUCT USED FOR UNKNOWN INDICATION
     Route: 041
     Dates: start: 2014, end: 2014

REACTIONS (5)
  - Flushing [Fatal]
  - Dyspnoea [Fatal]
  - Dizziness [Fatal]
  - Infusion related reaction [Fatal]
  - Unevaluable event [Fatal]

NARRATIVE: CASE EVENT DATE: 2014
